FAERS Safety Report 7382564-1 (Version None)
Quarter: 2011Q1

REPORT INFORMATION
  Report Type: 
  Country: None (occurrence: None)
  Receive Date: 20110329
  Receipt Date: 20110321
  Transmission Date: 20110831
  Serious: Yes (Other)
  Sender: FDA-Public Use
  Company Number: US-SANOFI-AVENTIS-2011SA017696

PATIENT
  Age: 65 Year
  Sex: Female

DRUGS (5)
  1. PLAVIX [Suspect]
     Indication: STENT PLACEMENT
     Route: 048
     Dates: start: 20060101, end: 20070101
  2. PLAVIX [Suspect]
     Route: 048
     Dates: start: 20070101
  3. PLAVIX [Suspect]
     Indication: MYOCARDIAL INFARCTION
     Route: 048
     Dates: start: 20060101, end: 20070101
  4. PLAVIX [Suspect]
     Route: 048
     Dates: start: 20070101
  5. ACIPHEX [Concomitant]

REACTIONS (8)
  - CORONARY ARTERY OCCLUSION [None]
  - CORONARY ARTERY RESTENOSIS [None]
  - OVERDOSE [None]
  - DYSPEPSIA [None]
  - IN-STENT CORONARY ARTERY RESTENOSIS [None]
  - FLATULENCE [None]
  - GASTROINTESTINAL DISORDER [None]
  - ABDOMINAL PAIN UPPER [None]
